FAERS Safety Report 19874585 (Version 3)
Quarter: 2021Q4

REPORT INFORMATION
  Report Type: Spontaneous
  Country: JP (occurrence: JP)
  Receive Date: 20210922
  Receipt Date: 20211022
  Transmission Date: 20220303
  Serious: Yes (Hospitalization)
  Sender: FDA-Public Use
  Company Number: NVSC2021JP214507

PATIENT
  Age: 79 Year
  Sex: Male
  Weight: 66 kg

DRUGS (1)
  1. IMATINIB MESYLATE [Suspect]
     Active Substance: IMATINIB MESYLATE
     Indication: Chronic myeloid leukaemia
     Dosage: UNK
     Route: 065

REACTIONS (5)
  - Focal segmental glomerulosclerosis [Recovering/Resolving]
  - Proteinuria [Not Recovered/Not Resolved]
  - Oedema [Unknown]
  - Blood creatinine increased [Not Recovered/Not Resolved]
  - Glomerular vascular disorder [Recovering/Resolving]
